FAERS Safety Report 8623147-2 (Version None)
Quarter: 2012Q3

REPORT INFORMATION
  Report Type: 
  Country: None (occurrence: None)
  Receive Date: 20120827
  Receipt Date: 20120820
  Transmission Date: 20120928
  Serious: Yes (Other)
  Sender: FDA-Public Use
  Company Number: US-UCBSA-064005

PATIENT
  Age: 64 Year
  Sex: Male

DRUGS (2)
  1. CIMZIA [Suspect]
     Indication: RHEUMATOID ARTHRITIS
     Dates: start: 20120702
  2. BACTRIM [Suspect]
     Indication: STAPHYLOCOCCAL INFECTION

REACTIONS (3)
  - STAPHYLOCOCCAL INFECTION [None]
  - SCRATCH [None]
  - RENAL FAILURE [None]
